FAERS Safety Report 4724238-9 (Version None)
Quarter: 2005Q3

REPORT INFORMATION
  Report Type: 
  Country: None (occurrence: None)
  Receive Date: 20050726
  Receipt Date: 20050714
  Transmission Date: 20060218
  Serious: Yes (Death, Hospitalization, Other)
  Sender: FDA-Public Use
  Company Number: US-JNJFOC-20040809421

PATIENT
  Sex: Female
  Weight: 47.63 kg

DRUGS (16)
  1. REMICADE [Suspect]
     Route: 042
  2. REMICADE [Suspect]
     Route: 042
  3. REMICADE [Suspect]
     Route: 042
  4. REMICADE [Suspect]
     Indication: CROHN'S DISEASE
     Route: 042
  5. DICLOFENAC SODIUM [Suspect]
  6. ACYCLOVIR [Suspect]
  7. PENTASA [Concomitant]
     Indication: CROHN'S DISEASE
  8. HYOSCYAMINE [Concomitant]
     Indication: CROHN'S DISEASE
  9. HYDROXYZINE [Concomitant]
  10. DARVOCET [Concomitant]
  11. DARVOCET [Concomitant]
  12. DEMEROL [Concomitant]
  13. ENTOCORT EC [Concomitant]
  14. IBUPROFEN [Concomitant]
  15. ELAVIL [Concomitant]
     Dosage: 25 MG BEDTIME
  16. PURINETHOL [Concomitant]

REACTIONS (29)
  - ABDOMINAL SEPSIS [None]
  - ABDOMINAL WALL ABSCESS [None]
  - ALANINE AMINOTRANSFERASE INCREASED [None]
  - ANASTOMOTIC LEAK [None]
  - BLOOD ALKALINE PHOSPHATASE INCREASED [None]
  - BLOOD UREA INCREASED [None]
  - CARDIO-RESPIRATORY ARREST [None]
  - CELLULITIS [None]
  - CROHN'S DISEASE [None]
  - DEHYDRATION [None]
  - ENTEROCUTANEOUS FISTULA [None]
  - FUNGAL INFECTION [None]
  - GASTROENTERITIS [None]
  - GENERALISED OEDEMA [None]
  - HERPES ZOSTER [None]
  - HYPOALBUMINAEMIA [None]
  - ILEUS [None]
  - INCISIONAL HERNIA [None]
  - INFLUENZA LIKE ILLNESS [None]
  - IRRITABLE BOWEL SYNDROME [None]
  - LIVER FUNCTION TEST ABNORMAL [None]
  - MALNUTRITION [None]
  - OEDEMA PERIPHERAL [None]
  - PELVIC ABSCESS [None]
  - PERITONEAL ADHESIONS [None]
  - ROSACEA [None]
  - SEPSIS [None]
  - SHIFT TO THE LEFT [None]
  - SMALL INTESTINAL OBSTRUCTION [None]
